FAERS Safety Report 14601961 (Version 2)
Quarter: 2024Q3

REPORT INFORMATION
  Report Type: Spontaneous
  Country: JP (occurrence: JP)
  Receive Date: 20180306
  Receipt Date: 20240705
  Transmission Date: 20241017
  Serious: Yes (Other)
  Sender: ALKEM
  Company Number: JP-ALKEM LABORATORIES LIMITED-JP-ALKEM-2018-01057

PATIENT
  Age: 50 Year
  Sex: Male

DRUGS (1)
  1. TRIAMCINOLONE ACETONIDE [Suspect]
     Active Substance: TRIAMCINOLONE ACETONIDE
     Indication: Product used for unknown indication
     Dosage: UNK (SUBTENON INJECTION)
     Route: 065

REACTIONS (3)
  - Infective scleritis [Recovering/Resolving]
  - Nocardiosis [Recovering/Resolving]
  - Orbital infection [Unknown]
